FAERS Safety Report 5534008-X (Version None)
Quarter: 2007Q4

REPORT INFORMATION
  Report Type: 
  Country: None (occurrence: None)
  Receive Date: 20071130
  Receipt Date: 20071127
  Transmission Date: 20080405
  Serious: No
  Sender: FDA-Public Use
  Company Number: 63440

PATIENT
  Age: 42 Year
  Sex: Female
  Weight: 70.7611 kg

DRUGS (5)
  1. ACETAMINOPHEN 500MG/PERRIGO COMPANY [Suspect]
     Dosage: ORAL
     Route: 048
     Dates: start: 20071123, end: 20071123
  2. EPI-PEN INJECTION [Concomitant]
  3. ZYRTEC [Concomitant]
  4. PEPCID [Concomitant]
  5. BENADRYL [Concomitant]

REACTIONS (4)
  - HYPERSENSITIVITY [None]
  - PRURITUS [None]
  - RASH GENERALISED [None]
  - SWOLLEN TONGUE [None]
